FAERS Safety Report 9457863 (Version 1)
Quarter: 2013Q3

REPORT INFORMATION
  Report Type: Spontaneous
  Country: US (occurrence: None)
  Receive Date: 20130812
  Receipt Date: 20130812
  Transmission Date: 20140515
  Serious: Yes (Disabling)
  Sender: FDA-Public Use
  Company Number: None

PATIENT
  Age: 64 Year
  Sex: Female
  Weight: 72.12 kg

DRUGS (4)
  1. EYLEA [Suspect]
     Indication: MACULAR DEGENERATION
     Dates: start: 201303
  2. AMOX-CLAV [Concomitant]
  3. FISH OIL [Concomitant]
  4. PROBIOTIC [Concomitant]

REACTIONS (7)
  - Headache [None]
  - Dizziness [None]
  - Vitreous floaters [None]
  - Photopsia [None]
  - Food allergy [None]
  - Immunodeficiency [None]
  - Diverticulitis [None]
